FAERS Safety Report 7454152-X (Version None)
Quarter: 2011Q2

REPORT INFORMATION
  Report Type: 
  Country: None (occurrence: None)
  Receive Date: 20110503
  Receipt Date: 20110425
  Transmission Date: 20111010
  Serious: No
  Sender: FDA-Public Use
  Company Number: US-BIOGENIDEC-2011BI015653

PATIENT
  Sex: Female

DRUGS (1)
  1. TYSABRI [Suspect]
     Indication: MULTIPLE SCLEROSIS
     Route: 042
     Dates: start: 20081010

REACTIONS (11)
  - PAIN [None]
  - PYREXIA [None]
  - DYSPNOEA [None]
  - VISUAL IMPAIRMENT [None]
  - COUGH [None]
  - PNEUMONIA [None]
  - LACRIMATION INCREASED [None]
  - APHASIA [None]
  - BLOOD URINE PRESENT [None]
  - DRY EYE [None]
  - URINARY INCONTINENCE [None]
